FAERS Safety Report 14880047 (Version 1)
Quarter: 2018Q2

REPORT INFORMATION
  Report Type: Report from Study
  Country: US (occurrence: US)
  Receive Date: 20180511
  Receipt Date: 20180511
  Transmission Date: 20180711
  Serious: Yes (Other)
  Sender: FDA-Public Use
  Company Number: US-SA-2018SA101314

PATIENT
  Age: 32 Year
  Sex: Female
  Weight: 81.9 kg

DRUGS (3)
  1. LEMTRADA [Suspect]
     Active Substance: ALEMTUZUMAB
     Indication: MULTIPLE SCLEROSIS
     Route: 041
     Dates: start: 20170424, end: 20170426
  2. LEMTRADA [Suspect]
     Active Substance: ALEMTUZUMAB
     Indication: MULTIPLE SCLEROSIS
     Route: 041
     Dates: start: 20160418
  3. VALACICLOVIR [Concomitant]
     Active Substance: VALACYCLOVIR HYDROCHLORIDE
     Indication: PROPHYLAXIS
     Route: 065
     Dates: start: 20170424

REACTIONS (4)
  - Autoimmune disorder [Unknown]
  - Immune thrombocytopenic purpura [Unknown]
  - Platelet count decreased [Recovered/Resolved]
  - Autoimmune neutropenia [Not Recovered/Not Resolved]

NARRATIVE: CASE EVENT DATE: 20171127
